FAERS Safety Report 12407330 (Version 5)
Quarter: 2017Q4

REPORT INFORMATION
  Report Type: Report from Study
  Country: TW (occurrence: TW)
  Receive Date: 20160526
  Receipt Date: 20171025
  Transmission Date: 20180320
  Serious: Yes (Other)
  Sender: FDA-Public Use
  Company Number: TW-JNJFOC-20160518969

PATIENT
  Age: 47 Year
  Sex: Male
  Weight: 78 kg

DRUGS (9)
  1. STELARA [Suspect]
     Active Substance: USTEKINUMAB
     Indication: PSORIASIS
     Route: 058
     Dates: start: 20170525, end: 20170623
  2. ACITRETIN. [Concomitant]
     Active Substance: ACITRETIN
     Route: 065
     Dates: start: 20130517, end: 20131010
  3. ACITRETIN. [Concomitant]
     Active Substance: ACITRETIN
     Dosage: 20 MG/DAY
     Route: 065
     Dates: start: 20121119, end: 20130425
  4. ACITRETIN. [Concomitant]
     Active Substance: ACITRETIN
     Route: 065
     Dates: start: 20131011, end: 20161206
  5. STELARA [Suspect]
     Active Substance: USTEKINUMAB
     Indication: PSORIASIS
     Route: 058
     Dates: start: 20130816, end: 20160126
  6. ACITRETIN. [Concomitant]
     Active Substance: ACITRETIN
     Route: 065
     Dates: start: 20170103, end: 20170525
  7. STELARA [Suspect]
     Active Substance: USTEKINUMAB
     Indication: PSORIASIS
     Route: 058
     Dates: start: 20170623
  8. NEOTIGASON [Concomitant]
     Active Substance: ACITRETIN
     Indication: PSORIASIS
     Route: 048
     Dates: start: 20131011
  9. ACITRETIN. [Concomitant]
     Active Substance: ACITRETIN
     Dosage: 20 MG/DAY
     Route: 065
     Dates: start: 20101215, end: 20110428

REACTIONS (2)
  - Latent tuberculosis [Recovered/Resolved]
  - Psoriasis [Unknown]

NARRATIVE: CASE EVENT DATE: 20160318
